FAERS Safety Report 18980126 (Version 2)
Quarter: 2022Q1

REPORT INFORMATION
  Report Type: Other
  Country: US (occurrence: None)
  Receive Date: 20210308
  Receipt Date: 20220204
  Transmission Date: 20220423
  Serious: Yes (Hospitalization)
  Sender: FDA-Public Use
  Company Number: US-ROCHE-2779153

PATIENT
  Age: 25 Year
  Sex: Female
  Weight: 66.738 kg

DRUGS (3)
  1. OCREVUS [Suspect]
     Active Substance: OCRELIZUMAB
     Indication: Relapsing-remitting multiple sclerosis
     Dosage: INFUSION DATES: 25/OCT/2018, 06/MAY/2019, 04/NOV/2019, OCT/2020
     Route: 042
     Dates: start: 201803, end: 20210402
  2. PROVIGIL [Concomitant]
     Active Substance: MODAFINIL
  3. OXYBUTYNIN CHLORIDE [Concomitant]
     Active Substance: OXYBUTYNIN CHLORIDE

REACTIONS (4)
  - COVID-19 pneumonia [Recovered/Resolved]
  - Multisystem inflammatory syndrome [Recovered/Resolved]
  - Ligament rupture [Not Recovered/Not Resolved]
  - Meniscus injury [Not Recovered/Not Resolved]

NARRATIVE: CASE EVENT DATE: 20201103
